FAERS Safety Report 23963349 (Version 2)
Quarter: 2024Q2

REPORT INFORMATION
  Report Type: Spontaneous
  Country: PT (occurrence: PT)
  Receive Date: 20240611
  Receipt Date: 20240617
  Transmission Date: 20240716
  Serious: Yes (Life-Threatening, Hospitalization)
  Sender: FDA-Public Use
  Company Number: PT-MLMSERVICE-20240605-PI089631-00298-1

PATIENT
  Age: 69 Year
  Sex: Female

DRUGS (10)
  1. SIMVASTATIN [Interacting]
     Active Substance: SIMVASTATIN
     Dosage: UNK
     Route: 048
  2. CLARITHROMYCIN [Interacting]
     Active Substance: CLARITHROMYCIN
     Indication: Helicobacter infection
     Dosage: UNK
  3. OMEPRAZOLE [Interacting]
     Active Substance: DONEPEZIL HYDROCHLORIDE\OMEPRAZOLE\OMEPRAZOLE MAGNESIUM
     Indication: Helicobacter infection
     Dosage: UNK
  4. METFORMIN [Concomitant]
     Active Substance: METFORMIN HYDROCHLORIDE
     Dosage: UNK
  5. RAMIPRIL [Concomitant]
     Active Substance: RAMIPRIL
     Dosage: UNK
  6. ATENOLOL [Concomitant]
     Active Substance: ATENOLOL
     Dosage: UNK
  7. GLICLAZIDE [Concomitant]
     Active Substance: GLICLAZIDE
     Dosage: UNK
  8. ASPIRIN [Concomitant]
     Active Substance: ASPIRIN
     Dosage: UNK
  9. INDAPAMIDE [Concomitant]
     Active Substance: INDAPAMIDE
     Dosage: UNK
  10. AMOXICILLIN [Concomitant]
     Active Substance: AMOXICILLIN
     Indication: Helicobacter infection
     Dosage: UNK

REACTIONS (2)
  - Rhabdomyolysis [Recovering/Resolving]
  - Drug interaction [Recovering/Resolving]
